FAERS Safety Report 23997307 (Version 1)
Quarter: 2024Q2

REPORT INFORMATION
  Report Type: Spontaneous
  Country: US (occurrence: US)
  Receive Date: 20240621
  Receipt Date: 20240621
  Transmission Date: 20240716
  Serious: No
  Sender: FDA-Public Use
  Company Number: US-BRAEBURN-US-BRA-24-000165

PATIENT
  Age: 24 Year
  Sex: Female
  Weight: 54.422 kg

DRUGS (2)
  1. BRIXADI [Suspect]
     Active Substance: BUPRENORPHINE
     Indication: Product used for unknown indication
     Dosage: 24 MILLIGRAM, WEEKLY
     Route: 058
     Dates: start: 20240131
  2. BRIXADI [Suspect]
     Active Substance: BUPRENORPHINE
     Dosage: 24 MILLGRAM, MONTHLY
     Route: 058

REACTIONS (3)
  - Feeling abnormal [Not Recovered/Not Resolved]
  - Injection site swelling [Not Recovered/Not Resolved]
  - Injection site reaction [Not Recovered/Not Resolved]
